FAERS Safety Report 6271554-8 (Version None)
Quarter: 2009Q3

REPORT INFORMATION
  Report Type: 
  Country: None (occurrence: None)
  Receive Date: 20090717
  Receipt Date: 20090709
  Transmission Date: 20100115
  Serious: Yes (Hospitalization)
  Sender: FDA-Public Use
  Company Number: US-MYLANLABS-2009S1010928

PATIENT
  Age: 9 Year
  Sex: Male
  Weight: 27.9 kg

DRUGS (6)
  1. GUANFACINE HYDROCHLORIDE [Suspect]
     Indication: ATTENTION DEFICIT/HYPERACTIVITY DISORDER
     Route: 048
     Dates: start: 20090613, end: 20090617
  2. GUANFACINE HYDROCHLORIDE [Suspect]
     Indication: AGGRESSION
     Route: 048
     Dates: start: 20090613, end: 20090617
  3. GUANFACINE HYDROCHLORIDE [Suspect]
     Route: 048
     Dates: start: 20090613, end: 20090617
  4. GUANFACINE HYDROCHLORIDE [Suspect]
     Route: 048
     Dates: start: 20090613, end: 20090617
  5. OLANZAPINE [Concomitant]
     Dates: start: 20090611, end: 20090617
  6. VYVANSE [Concomitant]
     Dates: start: 20090611, end: 20090617

REACTIONS (3)
  - ERYTHEMA [None]
  - RASH PRURITIC [None]
  - URTICARIA [None]
